FAERS Safety Report 9894735 (Version 2)
Quarter: 2014Q3

REPORT INFORMATION
  Report Type: Spontaneous
  Country: US (occurrence: US)
  Receive Date: 20140213
  Receipt Date: 20140805
  Transmission Date: 20150326
  Serious: Yes (Other)
  Sender: FDA-Public Use
  Company Number: US-009507513-1402USA006459

PATIENT
  Sex: Female
  Weight: 54.88 kg

DRUGS (1)
  1. NUVARING [Suspect]
     Active Substance: ETHINYL ESTRADIOL\ETONOGESTREL
     Indication: CONTRACEPTION
     Dosage: 0.12-0.015 MG/24HR
     Route: 067
     Dates: start: 20110915, end: 20120510

REACTIONS (6)
  - Sinus disorder [Unknown]
  - Drug ineffective [Unknown]
  - Embolic stroke [Unknown]
  - Cataract [Unknown]
  - Migraine with aura [Unknown]
  - Thrombosis [Unknown]

NARRATIVE: CASE EVENT DATE: 20120509
